FAERS Safety Report 7706789-8 (Version None)
Quarter: 2011Q3

REPORT INFORMATION
  Report Type: 
  Country: None (occurrence: None)
  Receive Date: 20110824
  Receipt Date: 20110816
  Transmission Date: 20111222
  Serious: Yes (Hospitalization, Other)
  Sender: FDA-Public Use
  Company Number: US-MERCK-1108USA01988

PATIENT
  Age: 56 Year
  Sex: Female
  Weight: 114 kg

DRUGS (5)
  1. JANUVIA [Suspect]
     Indication: DIABETES MELLITUS
     Route: 048
     Dates: start: 20110720, end: 20110727
  2. NEXIUM [Concomitant]
     Indication: GASTROOESOPHAGEAL REFLUX DISEASE
     Route: 065
  3. LOVASTATIN [Concomitant]
     Indication: HYPERLIPIDAEMIA
     Route: 065
  4. LISINOPRIL [Concomitant]
     Indication: HYPERTENSION
     Route: 065
  5. BONIVA [Concomitant]
     Indication: OSTEOPENIA
     Route: 065

REACTIONS (3)
  - PANCREATITIS [None]
  - HYPOKALAEMIA [None]
  - ABDOMINAL PAIN [None]
